FAERS Safety Report 6218170-1 (Version None)
Quarter: 2009Q2

REPORT INFORMATION
  Report Type: 
  Country: None (occurrence: None)
  Receive Date: 20090608
  Receipt Date: 20090528
  Transmission Date: 20091009
  Serious: Yes (Hospitalization)
  Sender: FDA-Public Use
  Company Number: IT-BAXTER-2009BH008015

PATIENT
  Age: 16 Year
  Sex: Female

DRUGS (1)
  1. GAMMAGARD LIQUID [Suspect]
     Indication: ACUTE LYMPHOCYTIC LEUKAEMIA
     Route: 042
     Dates: start: 20090430, end: 20090430

REACTIONS (5)
  - CHILLS [None]
  - CYANOSIS [None]
  - DYSPNOEA [None]
  - OXYGEN SATURATION DECREASED [None]
  - PYREXIA [None]
